FAERS Safety Report 6674314-9 (Version None)
Quarter: 2010Q2

REPORT INFORMATION
  Report Type: 
  Country: None (occurrence: None)
  Receive Date: 20100409
  Receipt Date: 20100331
  Transmission Date: 20101027
  Serious: Yes (Other)
  Sender: FDA-Public Use
  Company Number: FR-JNJFOC-20100200273

PATIENT
  Sex: Male

DRUGS (4)
  1. IMODIUM [Suspect]
     Route: 048
  2. IMODIUM [Suspect]
     Indication: DIARRHOEA
     Dosage: 3 OR 4 TABLETS A DAY
     Route: 048
  3. SMECTA [Concomitant]
  4. ERCEFURYL [Concomitant]
     Route: 048

REACTIONS (1)
  - URINARY RETENTION [None]
